FAERS Safety Report 9717137 (Version 5)
Quarter: 2014Q2

REPORT INFORMATION
  Report Type: Report from Study
  Country: US (occurrence: US)
  Receive Date: 20131127
  Receipt Date: 20140422
  Transmission Date: 20141212
  Serious: Yes (Other)
  Sender: FDA-Public Use
  Company Number: US-TEVA-447367USA

PATIENT
  Age: 28 Year
  Sex: Female

DRUGS (3)
  1. CLARAVIS [Suspect]
     Dosage: 60 MILLIGRAM DAILY;
     Route: 048
     Dates: start: 20130903, end: 201311
  2. ORAL CONTRACEPTIVE NOS [Concomitant]
  3. DEPO PROVERA [Concomitant]

REACTIONS (1)
  - Unintended pregnancy [Unknown]
